FAERS Safety Report 10709551 (Version 1)
Quarter: 2015Q1

REPORT INFORMATION
  Report Type: Report from Study
  Country: US (occurrence: US)
  Receive Date: 20150114
  Receipt Date: 20150114
  Transmission Date: 20150721
  Serious: Yes (Other)
  Sender: FDA-Public Use
  Company Number: US-AMGEN INC.-USASL2015001948

PATIENT
  Age: 57 Year
  Sex: Female
  Weight: 60.32 kg

DRUGS (1)
  1. ENBREL [Suspect]
     Active Substance: ETANERCEPT
     Indication: ARTHRITIS
     Dosage: 50 MG, QWK
     Route: 058
     Dates: start: 201403

REACTIONS (6)
  - Asthenia [Unknown]
  - Headache [Unknown]
  - Productive cough [Unknown]
  - Nasopharyngitis [Unknown]
  - Balance disorder [Unknown]
  - Ear infection bacterial [Unknown]

NARRATIVE: CASE EVENT DATE: 201406
